FAERS Safety Report 9087733 (Version 2)
Quarter: 2014Q4

REPORT INFORMATION
  Report Type: Spontaneous
  Country: US (occurrence: US)
  Receive Date: 20130201
  Receipt Date: 20141013
  Transmission Date: 20150529
  Serious: Yes (Other)
  Sender: FDA-Public Use
  Company Number: US-JNJFOC-20130113047

PATIENT

DRUGS (5)
  1. RITUXIMAB [Suspect]
     Active Substance: RITUXIMAB
     Indication: MANTLE CELL LYMPHOMA
     Dosage: ON DAY 1
     Route: 042
  2. TEMSIROLIMUS [Suspect]
     Active Substance: TEMSIROLIMUS
     Indication: MANTLE CELL LYMPHOMA
     Dosage: ON DAYS 1, 8,15, AND 22
     Route: 042
  3. CLADRIBINE. [Suspect]
     Active Substance: CLADRIBINE
     Indication: MANTLE CELL LYMPHOMA
     Dosage: ON DAY 1-5 OF 28 DAY CYCLE
     Route: 042
  4. FILGRASTIM [Concomitant]
     Active Substance: FILGRASTIM
     Dosage: 300-480UM DAYS 6-15
     Route: 065
  5. PEGFILGRASTIM [Concomitant]
     Active Substance: PEGFILGRASTIM
     Dosage: DAY 6
     Route: 065

REACTIONS (16)
  - Fatigue [Unknown]
  - Haemoglobin decreased [Unknown]
  - Nausea [Unknown]
  - Platelet count decreased [Unknown]
  - Cytokine release syndrome [Unknown]
  - Pneumonia [Unknown]
  - White blood cell count decreased [Unknown]
  - Vomiting [Unknown]
  - Thrombosis [Unknown]
  - Pneumonitis [Unknown]
  - Lymphocyte count decreased [Unknown]
  - Neutrophil count decreased [Unknown]
  - Blood glucose increased [Unknown]
  - Febrile neutropenia [Unknown]
  - Epistaxis [Unknown]
  - Adverse event [Unknown]
